FAERS Safety Report 5263355-4 (Version None)
Quarter: 2007Q1

REPORT INFORMATION
  Report Type: 
  Country: None (occurrence: None)
  Receive Date: 20070313
  Receipt Date: 20070306
  Transmission Date: 20070707
  Serious: Yes (Other)
  Sender: FDA-Public Use
  Company Number: GB-SP-2006-03084

PATIENT
  Sex: Male

DRUGS (1)
  1. IMMUCYST [Suspect]
     Indication: BLADDER CANCER
     Route: 043
     Dates: end: 20061108

REACTIONS (3)
  - INCORRECT DOSE ADMINISTERED [None]
  - PALPITATIONS [None]
  - URINARY TRACT INFECTION [None]
